FAERS Safety Report 5165865-7 (Version None)
Quarter: 2006Q4

REPORT INFORMATION
  Report Type: 
  Country: None (occurrence: None)
  Receive Date: 20061128
  Receipt Date: 20061113
  Transmission Date: 20070319
  Serious: Yes (Death, Hospitalization)
  Sender: FDA-Public Use
  Company Number: GXKR2006TW07349

PATIENT
  Age: 83 Year
  Sex: Female

DRUGS (6)
  1. CIPROFLOXACIN [Suspect]
     Indication: INFECTION
  2. CEFTRIAXONE [Suspect]
     Indication: INFECTION
  3. VANCOMYCIN [Suspect]
     Indication: INFECTION
  4. METRONIDAZOLE                      (METRONIDZOLE) [Suspect]
     Indication: INFECTION
  5. FLUCONAZOLE                  (FLUCONAXOLE) [Suspect]
     Indication: INFECTION
  6. IMIPENEM                     (IMIPENEM) [Suspect]
     Indication: INFECTION

REACTIONS (1)
  - CLOSTRIDIUM DIFFICILE COLITIS [None]
